FAERS Safety Report 16763685 (Version 1)
Quarter: 2019Q3

REPORT INFORMATION
  Report Type: Spontaneous
  Country: AU (occurrence: AU)
  Receive Date: 20190902
  Receipt Date: 20190902
  Transmission Date: 20191005
  Serious: Yes (Other)
  Sender: FDA-Public Use
  Company Number: AU-GLAXOSMITHKLINE-AU2019GSK155120

PATIENT
  Age: 52 Year
  Sex: Female

DRUGS (5)
  1. COBICISTAT + ELVITEGRAVIR + EMTRICITABINE + TENOFOVIR ALAFENAMIDE [Interacting]
     Active Substance: COBICISTAT\ELVITEGRAVIR\EMTRICITABINE\TENOFOVIR ALAFENAMIDE FUMARATE
     Indication: HIV INFECTION
     Dosage: UNK
  2. ITRACONAZOLE. [Interacting]
     Active Substance: ITRACONAZOLE
     Indication: BRONCHOPULMONARY ASPERGILLOSIS ALLERGIC
     Dosage: UNK
  3. FLUTICASONE FUROATE + VILANTEROL TRIFENATATE [Suspect]
     Active Substance: FLUTICASONE FUROATE\VILANTEROL TRIFENATATE
     Indication: BRONCHOPULMONARY ASPERGILLOSIS ALLERGIC
     Dosage: UNK
     Route: 055
  4. AMOXICILLIN + CLAVULANIC ACID [Interacting]
     Active Substance: AMOXICILLIN\CLAVULANIC ACID
     Indication: RESPIRATORY TRACT INFECTION
     Dosage: UNK
  5. ERYTHROMYCIN. [Suspect]
     Active Substance: ERYTHROMYCIN
     Indication: RESPIRATORY TRACT INFECTION
     Dosage: UNK

REACTIONS (12)
  - Cushingoid [Unknown]
  - Skin atrophy [Unknown]
  - Swelling face [Unknown]
  - Cortisol decreased [Unknown]
  - Respiratory tract infection [Unknown]
  - Blood pressure increased [Unknown]
  - Cushing^s syndrome [Unknown]
  - Lipohypertrophy [Unknown]
  - Myopathy [Unknown]
  - Dysphonia [Unknown]
  - Contusion [Unknown]
  - Drug interaction [Unknown]
